FAERS Safety Report 10528282 (Version 2)
Quarter: 2014Q4

REPORT INFORMATION
  Report Type: Report from Study
  Country: FR (occurrence: FR)
  Receive Date: 20141020
  Receipt Date: 20141030
  Transmission Date: 20150528
  Serious: Yes (Death)
  Sender: FDA-Public Use
  Company Number: FR-PFIZER INC-2014285753

PATIENT
  Age: 66 Year
  Sex: Male
  Weight: 83 kg

DRUGS (12)
  1. LODOZ [Concomitant]
     Active Substance: BISOPROLOL FUMARATE\HYDROCHLOROTHIAZIDE
     Indication: HYPERTENSION
     Dosage: 10 MG, 1X/DAY
     Route: 048
     Dates: start: 2004
  2. SERESTA [Concomitant]
     Active Substance: OXAZEPAM
     Indication: DEPRESSION
     Dosage: 50 MG, 3X/DAY
     Route: 048
     Dates: start: 20140725
  3. LEXOMIL [Concomitant]
     Active Substance: BROMAZEPAM
     Indication: DEPRESSION
     Dosage: 3 MG, DAILY
     Route: 048
     Dates: start: 1984
  4. ANAFRANIL [Concomitant]
     Active Substance: CLOMIPRAMINE HYDROCHLORIDE
     Indication: DEPRESSION
     Dosage: 25 MG, 2X/DAY
     Route: 048
     Dates: start: 1984, end: 20140725
  5. LERCANIDIPINE [Concomitant]
     Active Substance: LERCANIDIPINE
     Indication: HYPERTENSION
     Dosage: 10 MG, 1X/DAY
     Route: 048
     Dates: start: 2004
  6. THERALENE [Concomitant]
     Active Substance: TRIMEPRAZINE
     Indication: INSOMNIA
     Dosage: 2 GTT, 2X/DAY
     Dates: start: 20140725
  7. AXITINIB [Suspect]
     Active Substance: AXITINIB
     Dosage: 5 MG, 2X/DAY
     Route: 048
     Dates: start: 20140725, end: 20141002
  8. NEO-MERCAZOLE [Concomitant]
     Active Substance: CARBIMAZOLE
     Indication: HYPERTHYROIDISM
     Dosage: 40 MG, 1X/DAY
     Route: 048
     Dates: start: 20140718, end: 20140808
  9. ZOPICLONE [Concomitant]
     Active Substance: ZOPICLONE
     Indication: INSOMNIA
     Dosage: 7.5 MG, 1X/DAY
     Route: 048
     Dates: start: 1984, end: 20140725
  10. AXITINIB [Suspect]
     Active Substance: AXITINIB
     Indication: CLEAR CELL RENAL CELL CARCINOMA
     Dosage: 5 MG, 2X/DAY
     Route: 048
     Dates: start: 20140711
  11. METFORMIN [Concomitant]
     Active Substance: METFORMIN HYDROCHLORIDE
     Indication: DIABETES MELLITUS
     Dosage: 850 MG, 2X/DAY
     Route: 048
     Dates: start: 2007
  12. NEO-MERCAZOLE [Concomitant]
     Active Substance: CARBIMAZOLE
     Dosage: 30 MG, 1X/DAY
     Route: 048
     Dates: start: 20140808

REACTIONS (1)
  - Completed suicide [Fatal]

NARRATIVE: CASE EVENT DATE: 20141014
